FAERS Safety Report 23062152 (Version 1)
Quarter: 2023Q4

REPORT INFORMATION
  Report Type: Spontaneous
  Country: US (occurrence: None)
  Receive Date: 20231013
  Receipt Date: 20231013
  Transmission Date: 20240109
  Serious: No
  Sender: FDA-Public Use
  Company Number: 2023A230897

PATIENT

DRUGS (1)
  1. LYNPARZA [Suspect]
     Active Substance: OLAPARIB
     Route: 048
     Dates: start: 20230601

REACTIONS (4)
  - Cough [Unknown]
  - Upper-airway cough syndrome [Unknown]
  - Myalgia [Unknown]
  - Sleep disorder [Unknown]
